FAERS Safety Report 18627696 (Version 1)
Quarter: 2020Q4

REPORT INFORMATION
  Report Type: Spontaneous
  Country: GB (occurrence: GB)
  Receive Date: 20201216
  Receipt Date: 20201216
  Transmission Date: 20210114
  Serious: Yes (Hospitalization, Disabling)
  Sender: FDA-Public Use
  Company Number: None

PATIENT
  Age: 30 Year
  Sex: Female
  Weight: 67.05 kg

DRUGS (4)
  1. BOTOX [Suspect]
     Active Substance: ONABOTULINUMTOXINA
     Indication: MIGRAINE
     Route: 030
     Dates: start: 20200915, end: 20200915
  2. ACTIVATED CHARCOAL. [Concomitant]
     Active Substance: ACTIVATED CHARCOAL
  3. ASHGWANDA [Concomitant]
  4. VITAMIN C [Concomitant]
     Active Substance: ASCORBIC ACID

REACTIONS (11)
  - Skin burning sensation [None]
  - Facial paralysis [None]
  - Weight decreased [None]
  - Nausea [None]
  - Post-traumatic stress disorder [None]
  - Heart rate increased [None]
  - Head discomfort [None]
  - Blood pressure increased [None]
  - Panic attack [None]
  - Anxiety [None]
  - White blood cell count increased [None]

NARRATIVE: CASE EVENT DATE: 20201029
